FAERS Safety Report 12640800 (Version 1)
Quarter: 2016Q3

REPORT INFORMATION
  Report Type: Report from Study
  Country: US (occurrence: US)
  Receive Date: 20160810
  Receipt Date: 20160810
  Transmission Date: 20161109
  Serious: Yes (Death, Other)
  Sender: FDA-Public Use
  Company Number: US-GILEAD-2016-0222741

PATIENT
  Age: 83 Year
  Sex: Female

DRUGS (2)
  1. PROGESTERONE. [Concomitant]
     Active Substance: PROGESTERONE
  2. IDELALISIB [Suspect]
     Active Substance: IDELALISIB
     Indication: CHRONIC LYMPHOCYTIC LEUKAEMIA
     Dosage: 100 MG, BID
     Route: 048
     Dates: start: 20150326, end: 20160801

REACTIONS (5)
  - Dysstasia [Unknown]
  - Anaemia [Unknown]
  - Malaise [Unknown]
  - Insomnia [Unknown]
  - Death [Fatal]

NARRATIVE: CASE EVENT DATE: 20160801
